FAERS Safety Report 20308957 (Version 1)
Quarter: 2022Q1

REPORT INFORMATION
  Report Type: Spontaneous
  Country: None (occurrence: US)
  Receive Date: 20220107
  Receipt Date: 20220107
  Transmission Date: 20220423
  Serious: Yes (Other)
  Sender: FDA-Public Use
  Company Number: US-ITALFARMACO SPA-2123711

PATIENT
  Age: 64 Year
  Sex: Male

DRUGS (5)
  1. TIGLUTIK [Suspect]
     Active Substance: RILUZOLE
     Indication: Amyotrophic lateral sclerosis
     Dates: start: 20211207, end: 20211224
  2. ELIQUIS [Concomitant]
     Active Substance: APIXABAN
  3. RITUXAN [Concomitant]
     Active Substance: RITUXIMAB
  4. MELATONIN [Concomitant]
     Active Substance: MELATONIN
  5. PREDNISONE [Concomitant]
     Active Substance: PREDNISONE

REACTIONS (1)
  - Haematochezia [Not Recovered/Not Resolved]

NARRATIVE: CASE EVENT DATE: 20211219
